FAERS Safety Report 12089423 (Version 1)
Quarter: 2016Q1

REPORT INFORMATION
  Report Type: Report from Study
  Country: JP (occurrence: JP)
  Receive Date: 20160218
  Receipt Date: 20160218
  Transmission Date: 20160526
  Serious: Yes (Death)
  Sender: FDA-Public Use
  Company Number: JP-WATSON-2016-02765

PATIENT
  Age: 80 Year
  Sex: Male

DRUGS (2)
  1. RAPAFLO [Suspect]
     Active Substance: SILODOSIN
     Indication: BENIGN PROSTATIC HYPERPLASIA
  2. RAPAFLO [Suspect]
     Active Substance: SILODOSIN
     Indication: DYSURIA
     Dosage: 8 MG, DAILY
     Route: 048
     Dates: start: 20150818, end: 20151017

REACTIONS (1)
  - Haematemesis [Fatal]

NARRATIVE: CASE EVENT DATE: 20151017
